FAERS Safety Report 7169763-9 (Version None)
Quarter: 2010Q4

REPORT INFORMATION
  Report Type: 
  Country: None (occurrence: None)
  Receive Date: 20101217
  Receipt Date: 20100317
  Transmission Date: 20110411
  Serious: No
  Sender: FDA-Public Use
  Company Number: A0850669A

PATIENT
  Age: 58 Year
  Sex: Male

DRUGS (9)
  1. SORIATANE [Suspect]
     Dosage: 1TAB PER DAY
     Route: 048
     Dates: start: 20070801
  2. ACYCLOVIR SODIUM [Concomitant]
  3. NORVIR [Concomitant]
  4. PREZISTA [Concomitant]
  5. UNKNOWN [Concomitant]
  6. UNKNOWN [Concomitant]
  7. TIMOLOL [Concomitant]
  8. FOSAMAX [Concomitant]
  9. PROTONIX [Concomitant]

REACTIONS (5)
  - ALOPECIA [None]
  - BLOOD CHOLESTEROL INCREASED [None]
  - BLOOD TRIGLYCERIDES INCREASED [None]
  - DRUG INEFFECTIVE [None]
  - LIP EXFOLIATION [None]
